FAERS Safety Report 7724675-4 (Version None)
Quarter: 2011Q3

REPORT INFORMATION
  Report Type: 
  Country: None (occurrence: None)
  Receive Date: 20110901
  Receipt Date: 20110830
  Transmission Date: 20111222
  Serious: Yes (Life-Threatening)
  Sender: FDA-Public Use
  Company Number: GB-EISAI INC-E2090-01737-SPO-GB

PATIENT
  Sex: Female

DRUGS (7)
  1. VALPROATE SODIUM [Suspect]
     Indication: MENTAL DISORDER
  2. VENLAFAXINE HYDROCHLORIDE [Concomitant]
     Indication: DEPRESSION
     Route: 048
  3. ZONISAMIDE [Suspect]
     Indication: EPILEPSY
     Route: 048
  4. ZONISAMIDE [Suspect]
     Indication: MENTAL DISORDER
  5. KEPPRA [Suspect]
     Indication: MENTAL DISORDER
  6. KEPPRA [Suspect]
     Indication: EPILEPSY
     Route: 048
  7. VALPROATE SODIUM [Suspect]
     Indication: EPILEPSY
     Route: 048

REACTIONS (6)
  - MENTAL IMPAIRMENT [None]
  - CONVULSION [None]
  - ANXIETY [None]
  - PALPITATIONS [None]
  - HYPERVENTILATION [None]
  - MICTURITION URGENCY [None]
